FAERS Safety Report 7291649-X (Version None)
Quarter: 2011Q1

REPORT INFORMATION
  Report Type: 
  Country: None (occurrence: None)
  Receive Date: 20110202
  Receipt Date: 20110119
  Transmission Date: 20110831
  Serious: Yes (Other)
  Sender: FDA-Public Use
  Company Number: GB-ACCORD-007946

PATIENT
  Age: 62 Year
  Sex: Male

DRUGS (3)
  1. SIMVASTATIN [Suspect]
     Indication: ATRIAL FIBRILLATION
     Dosage: 40.00-MG-ORAL
     Route: 048
     Dates: start: 20070101
  2. RAMIPRIL [Suspect]
     Indication: HYPERTENSION
     Dosage: 5.00-MG-ORAL
     Route: 048
  3. WARFARIN (WARFARIN) [Suspect]
     Indication: ATRIAL FIBRILLATION
     Dosage: ORAL
     Route: 048
     Dates: start: 20070101

REACTIONS (1)
  - HYPONATRAEMIA [None]
